FAERS Safety Report 4641182-6 (Version None)
Quarter: 2005Q2

REPORT INFORMATION
  Report Type: 
  Country: None (occurrence: None)
  Receive Date: 20050419
  Receipt Date: 20050419
  Transmission Date: 20051028
  Serious: No
  Sender: FDA-Public Use
  Company Number: None

PATIENT
  Age: 47 Year
  Sex: Male
  Weight: 81.1939 kg

DRUGS (1)
  1. ZETIA [Suspect]
     Indication: HYPERLIPIDAEMIA
     Dosage: 10MG  1XDAILY
     Dates: start: 20050101, end: 20050301

REACTIONS (6)
  - ABDOMINAL PAIN [None]
  - DRUG INTOLERANCE [None]
  - FATIGUE [None]
  - GASTROINTESTINAL DISORDER [None]
  - NAUSEA [None]
  - PALLOR [None]
